FAERS Safety Report 9009484 (Version 1)
Quarter: 2013Q1

REPORT INFORMATION
  Report Type: Report from Study
  Country: DE (occurrence: DE)
  Receive Date: 20130110
  Receipt Date: 20130110
  Transmission Date: 20140127
  Serious: Yes (Other)
  Sender: FDA-Public Use
  Company Number: GXKR2013DE000501

PATIENT
  Age: 62 Year
  Sex: Female
  Weight: 76 kg

DRUGS (9)
  1. MTX [Suspect]
     Indication: PSORIASIS
     Dosage: 15 MG, QW
     Route: 058
     Dates: start: 20120119, end: 20121030
  2. HUMIRA [Suspect]
     Indication: PSORIASIS
     Dosage: 40 MG, BID
     Route: 058
     Dates: start: 20121102, end: 20121102
  3. HUMIRA [Suspect]
     Dosage: 40 MG, QD
     Route: 058
     Dates: start: 20121109, end: 20121109
  4. CICLOSPORIN [Concomitant]
  5. SIMVABETA [Concomitant]
  6. ALENDRON [Concomitant]
  7. L THYROXINE [Concomitant]
  8. DEKRISTOL [Concomitant]
  9. DAIVOBET [Concomitant]

REACTIONS (4)
  - Cardiac disorder [Recovered/Resolved]
  - Rash [Recovered/Resolved]
  - Myalgia [Recovered/Resolved]
  - Erythema [Recovered/Resolved]
